FAERS Safety Report 8251506-9 (Version None)
Quarter: 2012Q2

REPORT INFORMATION
  Report Type: 
  Country: None (occurrence: None)
  Receive Date: 20120402
  Receipt Date: 20120323
  Transmission Date: 20120825
  Serious: Yes (Hospitalization, Other)
  Sender: FDA-Public Use
  Company Number: CZ-ASTRAZENECA-2012SE09656

PATIENT
  Age: 24071 Day
  Sex: Male

DRUGS (28)
  1. AZD6140 [Suspect]
     Indication: CORONARY ARTERY DISEASE
     Route: 048
     Dates: start: 20111123, end: 20111208
  2. ENOXAPARIN [Concomitant]
     Indication: THROMBOSIS PROPHYLAXIS
     Route: 058
     Dates: start: 20111208, end: 20111213
  3. AMIODARONE HCL [Concomitant]
     Indication: ATRIAL FIBRILLATION
     Route: 048
     Dates: start: 20111212
  4. ASPIRIN [Suspect]
     Route: 048
     Dates: end: 20111212
  5. HYDROCHLOROTHIAZIDE [Suspect]
     Indication: HYPERTENSION
     Route: 048
     Dates: end: 20111207
  6. INSULINUM GLULISINUM [Concomitant]
     Indication: DIABETES MELLITUS
     Route: 058
  7. AMOXILILIN+ACIDUM CLAVULANICUM [Concomitant]
     Indication: BRONCHOPNEUMONIA
     Route: 042
     Dates: start: 20111206, end: 20120120
  8. ACETAMINOPHEN [Concomitant]
     Indication: PYREXIA
     Route: 048
     Dates: start: 20111206, end: 20111207
  9. AMILORIDE HYDROCHLORIDE [Suspect]
     Indication: HYPERTENSION
     Route: 048
     Dates: end: 20111207
  10. BIMATOPROSTUM [Concomitant]
     Indication: DIABETIC RETINOPATHY
     Route: 047
  11. PERINDOPRIL ERBUMINE [Concomitant]
     Indication: HYPERTENSION
     Route: 048
     Dates: end: 20111208
  12. TIMOLOL MALEATE [Concomitant]
     Indication: DIABETIC RETINOPATHY
     Route: 047
  13. DORZOLAMIDUM [Concomitant]
     Indication: DIABETIC RETINOPATHY
     Route: 047
  14. BISOPROLOL FUMARATE [Concomitant]
     Indication: MYOCARDIAL INFARCTION
     Route: 048
     Dates: end: 20111212
  15. NORADRENALIN [Concomitant]
     Indication: HYPOTENSION
     Route: 042
     Dates: start: 20111210, end: 20111215
  16. METOPROLOL SUCCINATE [Concomitant]
     Indication: ATRIAL FIBRILLATION
     Route: 048
     Dates: start: 20111212
  17. PENTOXIFYLLINE [Concomitant]
     Indication: DIABETIC VASCULAR DISORDER
     Route: 048
     Dates: end: 20111208
  18. FENOFIBRATE [Concomitant]
     Indication: HYPERLIPIDAEMIA
     Route: 048
     Dates: end: 20111208
  19. DOBUTAMIN [Concomitant]
     Indication: HYPOTENSION
     Route: 042
     Dates: start: 20111210, end: 20111214
  20. CIPROFLOXACIN [Concomitant]
     Indication: BRONCHOPNEUMONIA
     Route: 042
     Dates: start: 20111210, end: 20111230
  21. PARACETAMOLUM [Concomitant]
     Indication: PYREXIA
     Route: 048
     Dates: start: 20111208, end: 20120108
  22. INSULINUM GLARGINUM [Concomitant]
     Indication: DIABETES MELLITUS
     Route: 058
  23. LOSARTAN POTASSIUM [Concomitant]
     Indication: HYPERTENSION
     Route: 048
     Dates: end: 20111206
  24. FUROSEMIDE [Concomitant]
     Indication: RENAL FAILURE
     Route: 042
     Dates: start: 20111210, end: 20111211
  25. ATORVASTATIN [Concomitant]
     Indication: HYPERLIPIDAEMIA
     Route: 048
     Dates: end: 20111212
  26. AMLODIPINE [Concomitant]
     Indication: HYPERTENSION
     Route: 048
     Dates: end: 20111208
  27. ALLOPURINOL [Concomitant]
     Indication: HYPERURICAEMIA
     Route: 048
     Dates: end: 20111212
  28. DIGOXIN [Concomitant]
     Indication: ATRIAL FIBRILLATION
     Route: 042
     Dates: start: 20111210, end: 20111210

REACTIONS (7)
  - BRONCHOPNEUMONIA [None]
  - GASTRIC ULCER HAEMORRHAGE [None]
  - ANAEMIA [None]
  - TRAUMATIC HAEMATOMA [None]
  - DUODENAL ULCER HAEMORRHAGE [None]
  - RENAL FAILURE [None]
  - ABSCESS LIMB [None]
